FAERS Safety Report 14274593 (Version 9)
Quarter: 2025Q4

REPORT INFORMATION
  Report Type: Spontaneous
  Country: EU (occurrence: EU)
  Receive Date: 20171212
  Receipt Date: 20251121
  Transmission Date: 20260117
  Serious: Yes (Hospitalization, Other)
  Sender: AUROBINDO
  Company Number: EU-FERRERINT-001969

PATIENT
  Sex: Female

DRUGS (3)
  1. AMLODIPINE [Suspect]
     Active Substance: AMLODIPINE BESYLATE
     Indication: Essential hypertension
     Dosage: ONCE A DAY
  2. OLMESARTAN [Suspect]
     Active Substance: OLMESARTAN
     Indication: Essential hypertension
     Dosage: UNK (LAST DOSE ADMINISTERED 24 HOURS PRIOR TO C-SECTION,DAILY)
  3. OLMESARTAN [Suspect]
     Active Substance: OLMESARTAN
     Dosage: UNK, ONCE A DAY
     Route: 065

REACTIONS (5)
  - Oligohydramnios [Recovered/Resolved]
  - Premature baby [Unknown]
  - Exposure during pregnancy [Recovered/Resolved]
  - Off label use [Recovered/Resolved]
  - Contraindicated product administered [Unknown]
